FAERS Safety Report 8029193-4 (Version None)
Quarter: 2012Q1

REPORT INFORMATION
  Report Type: 
  Country: None (occurrence: None)
  Receive Date: 20120106
  Receipt Date: 20111228
  Transmission Date: 20120608
  Serious: Yes (Other)
  Sender: FDA-Public Use
  Company Number: PHEH2011US010130

PATIENT
  Age: 72 Year
  Sex: Male
  Weight: 81.7 kg

DRUGS (4)
  1. NIFEDICAL [Concomitant]
     Dosage: 60 MG, ONCE A DAY
     Route: 048
     Dates: start: 20100915
  2. BENAZEPRIL HYDROCHLORIDE [Concomitant]
     Dosage: 20 / 12.5 MILLIGRAM TWICEA DAY
     Route: 048
     Dates: start: 20100915
  3. GLEEVEC [Suspect]
     Indication: ABDOMINAL NEOPLASM
     Dosage: 400 MG, UNK
     Route: 048
     Dates: start: 20101008
  4. CARVEDILOL [Concomitant]
     Dosage: 12.5 MG, TWICE A DAY
     Route: 048

REACTIONS (3)
  - CHOLELITHIASIS [None]
  - NEOPLASM MALIGNANT [None]
  - NEOPLASM PROGRESSION [None]
